FAERS Safety Report 6841584-3 (Version None)
Quarter: 2010Q3

REPORT INFORMATION
  Report Type: 
  Country: None (occurrence: None)
  Receive Date: 20100714
  Receipt Date: 20090107
  Transmission Date: 20110219
  Serious: Yes (Other)
  Sender: FDA-Public Use
  Company Number: US-PFIZER INC-2007053185

PATIENT
  Sex: Male
  Weight: 102.27 kg

DRUGS (3)
  1. CHANTIX [Suspect]
     Indication: SMOKING CESSATION THERAPY
     Route: 048
     Dates: start: 20070615
  2. BENADRYL [Suspect]
     Indication: RASH
     Dosage: ONCE
     Dates: start: 20070620, end: 20070620
  3. CHONDROITIN/GLUCOSAMINE [Concomitant]

REACTIONS (3)
  - DYSPNOEA [None]
  - FATIGUE [None]
  - RASH [None]
